FAERS Safety Report 22823692 (Version 5)
Quarter: 2023Q4

REPORT INFORMATION
  Report Type: Spontaneous
  Country: US (occurrence: US)
  Receive Date: 20230815
  Receipt Date: 20231201
  Transmission Date: 20240110
  Serious: Yes (Hospitalization, Other)
  Sender: FDA-Public Use
  Company Number: US-PFIZER INC-PV202300138661

PATIENT
  Age: 61 Year
  Sex: Female

DRUGS (1)
  1. IBRANCE [Suspect]
     Active Substance: PALBOCICLIB
     Dosage: 100 MG QD (ONCE A DAY)

REACTIONS (4)
  - Cellulitis [Unknown]
  - Pyrexia [Unknown]
  - Rash [Unknown]
  - Central nervous system lesion [Unknown]
